FAERS Safety Report 7929156-0 (Version None)
Quarter: 2011Q4

REPORT INFORMATION
  Report Type: 
  Country: None (occurrence: None)
  Receive Date: 20111120
  Receipt Date: 20111108
  Transmission Date: 20120403
  Serious: Yes (Hospitalization)
  Sender: FDA-Public Use
  Company Number: DE-ELI_LILLY_AND_COMPANY-DE201111002524

PATIENT
  Sex: Male

DRUGS (3)
  1. CORTISONE ACETATE [Concomitant]
  2. CALCIUM CARBONATE [Concomitant]
  3. FORTEO [Suspect]
     Indication: OSTEOPOROSIS
     Dosage: UNK, QD
     Route: 058
     Dates: start: 20111006

REACTIONS (3)
  - BACTERIAL INFECTION [None]
  - BONE PAIN [None]
  - PYREXIA [None]
